FAERS Safety Report 8422118-9 (Version None)
Quarter: 2012Q2

REPORT INFORMATION
  Report Type: 
  Country: None (occurrence: None)
  Receive Date: 20120323
  Receipt Date: 20111215
  Transmission Date: 20120825
  Serious: Yes (Hospitalization)
  Sender: FDA-Public Use
  Company Number: 163-21880-11122030

PATIENT
  Age: 79 Year
  Sex: Male

DRUGS (2)
  1. REVLIMID [Suspect]
     Indication: MYELODYSPLASTIC SYNDROME
     Dosage: 10 MG, DAILY FOR 21 DAYS ON 7 DAYS OFF, PO
     Route: 048
     Dates: start: 20111001
  2. REVLIMID [Suspect]

REACTIONS (3)
  - URINARY TRACT INFECTION [None]
  - FULL BLOOD COUNT DECREASED [None]
  - THROMBOSIS [None]
